FAERS Safety Report 6394718-1 (Version None)
Quarter: 2009Q4

REPORT INFORMATION
  Report Type: 
  Country: None (occurrence: None)
  Receive Date: 20091009
  Receipt Date: 20090930
  Transmission Date: 20100525
  Serious: Yes (Hospitalization)
  Sender: FDA-Public Use
  Company Number: US-JNJFOC-20090908682

PATIENT
  Sex: Female
  Weight: 62.6 kg

DRUGS (9)
  1. REMICADE [Suspect]
     Route: 042
  2. REMICADE [Suspect]
     Indication: COLITIS ULCERATIVE
     Route: 042
  3. COUMADIN [Concomitant]
     Indication: DEEP VEIN THROMBOSIS
     Route: 048
  4. MULTI-VITAMINS [Concomitant]
  5. IRON [Concomitant]
     Indication: ANAEMIA
  6. BALSALAZIDE [Concomitant]
     Dosage: 750 MG TABLETS
     Route: 048
  7. CALCIUM [Concomitant]
  8. FISH OIL [Concomitant]
  9. ALIGN NOS [Concomitant]

REACTIONS (5)
  - ANTICOAGULATION DRUG LEVEL BELOW THERAPEUTIC [None]
  - DEEP VEIN THROMBOSIS [None]
  - DRUG INEFFECTIVE [None]
  - GALLBLADDER OPERATION [None]
  - PHLEBITIS [None]
